FAERS Safety Report 16829534 (Version 1)
Quarter: 2019Q3

REPORT INFORMATION
  Report Type: Spontaneous
  Country: CN (occurrence: CN)
  Receive Date: 20190919
  Receipt Date: 20190919
  Transmission Date: 20191005
  Serious: Yes (Hospitalization)
  Sender: FDA-Public Use
  Company Number: CN-JNJFOC-20190921629

PATIENT
  Age: 65 Year
  Sex: Female
  Weight: 45 kg

DRUGS (4)
  1. SPORANOX [Suspect]
     Active Substance: ITRACONAZOLE
     Route: 048
     Dates: start: 20190901, end: 20190907
  2. SPORANOX [Suspect]
     Active Substance: ITRACONAZOLE
     Indication: ANTIFUNGAL TREATMENT
     Route: 048
     Dates: start: 20190801, end: 20190807
  3. SPORANOX [Suspect]
     Active Substance: ITRACONAZOLE
     Indication: DERMATOPHYTOSIS OF NAIL
     Route: 048
     Dates: start: 20190701, end: 20190707
  4. TELMISARTAN. [Concomitant]
     Active Substance: TELMISARTAN
     Indication: HYPERTENSION
     Route: 048

REACTIONS (4)
  - Abdominal distension [Recovering/Resolving]
  - Regurgitation [Recovering/Resolving]
  - Hepatic function abnormal [Unknown]
  - Eructation [Unknown]

NARRATIVE: CASE EVENT DATE: 20190811
